FAERS Safety Report 6086844-1 (Version None)
Quarter: 2009Q1

REPORT INFORMATION
  Report Type: 
  Country: None (occurrence: None)
  Receive Date: 20090223
  Receipt Date: 20090123
  Transmission Date: 20090719
  Serious: Yes (Hospitalization)
  Sender: FDA-Public Use
  Company Number: US-PFIZER INC-2009160935

PATIENT
  Sex: Female

DRUGS (4)
  1. BEXTRA [Suspect]
     Dosage: 20 MG, UNK
     Dates: end: 20030723
  2. SKELAXIN [Concomitant]
     Indication: ARTHRALGIA
     Dosage: UNK
     Dates: end: 20030723
  3. SKELAXIN [Concomitant]
  4. LASIX [Concomitant]
     Dosage: UNK
     Dates: end: 20030723

REACTIONS (1)
  - AZOTAEMIA [None]
